FAERS Safety Report 23191388 (Version 1)
Quarter: 2023Q4

REPORT INFORMATION
  Report Type: Spontaneous
  Country: QA (occurrence: QA)
  Receive Date: 20231116
  Receipt Date: 20231116
  Transmission Date: 20240110
  Serious: Yes (Hospitalization, Other)
  Sender: FDA-Public Use
  Company Number: QA-MYLANLABS-2023M1121765

PATIENT
  Sex: Female

DRUGS (1)
  1. CELEBREX [Suspect]
     Active Substance: CELECOXIB
     Indication: Intervertebral disc disorder
     Dosage: 200 MILLIGRAM, BID
     Route: 065

REACTIONS (4)
  - Ischaemia [Unknown]
  - Syncope [Unknown]
  - Palpitations [Unknown]
  - Headache [Unknown]
